FAERS Safety Report 7681246-6 (Version None)
Quarter: 2011Q3

REPORT INFORMATION
  Report Type: 
  Country: None (occurrence: None)
  Receive Date: 20110812
  Receipt Date: 20110802
  Transmission Date: 20111222
  Serious: Yes (Hospitalization)
  Sender: FDA-Public Use
  Company Number: US-JNJFOC-20101104775

PATIENT
  Sex: Female
  Weight: 44.5 kg

DRUGS (9)
  1. MERCAPTOPURINE [Concomitant]
  2. GROWTH HORMONE [Concomitant]
  3. PREDNISONE [Concomitant]
     Route: 048
  4. METHOTREXATE [Concomitant]
  5. PROBIOTICS [Concomitant]
  6. REMICADE [Suspect]
     Route: 042
     Dates: start: 20090506
  7. CORTICOSTEROIDS [Concomitant]
     Route: 054
  8. ANTIBIOTICS [Concomitant]
     Indication: INFLAMMATORY BOWEL DISEASE
  9. REMICADE [Suspect]
     Indication: CROHN'S DISEASE
     Route: 042
     Dates: start: 20100506

REACTIONS (1)
  - VARICELLA [None]
